FAERS Safety Report 11396733 (Version 4)
Quarter: 2015Q3

REPORT INFORMATION
  Report Type: Spontaneous
  Country: US (occurrence: US)
  Receive Date: 20150819
  Receipt Date: 20150910
  Transmission Date: 20151125
  Serious: Yes (Death, Hospitalization)
  Sender: FDA-Public Use
  Company Number: US-HORIZON-RAV-0064-2015

PATIENT
  Age: 20 Year
  Sex: Male

DRUGS (1)
  1. RAVICTI [Suspect]
     Active Substance: GLYCEROL PHENYLBUTYRATE
     Indication: UREA CYCLE ENZYME DEFICIENCY
     Dosage: 7.2 ML TWICE DAILY

REACTIONS (2)
  - Off label use [Unknown]
  - Hyperammonaemia [Fatal]

NARRATIVE: CASE EVENT DATE: 20150816
